FAERS Safety Report 16657156 (Version 4)
Quarter: 2020Q3

REPORT INFORMATION
  Report Type: Spontaneous
  Country: US (occurrence: US)
  Receive Date: 20190801
  Receipt Date: 20200720
  Transmission Date: 20201102
  Serious: No
  Sender: FDA-Public Use
  Company Number: US-PFIZER INC-2019329058

PATIENT
  Age: 66 Year
  Sex: Female
  Weight: 79.83 kg

DRUGS (2)
  1. HYDROCODONE [Concomitant]
     Active Substance: HYDROCODONE
     Indication: PAIN
     Dosage: UNK
  2. LYRICA [Suspect]
     Active Substance: PREGABALIN
     Indication: MULTIPLE SCLEROSIS
     Dosage: 150 MG, 2X/DAY (150MG, TWICE A DAY BY MOUTH)
     Route: 048

REACTIONS (3)
  - Product use in unapproved indication [Unknown]
  - Limb discomfort [Unknown]
  - Off label use [Unknown]
